FAERS Safety Report 5902882-0 (Version None)
Quarter: 2008Q3

REPORT INFORMATION
  Report Type: 
  Country: None (occurrence: None)
  Receive Date: 20080929
  Receipt Date: 20080929
  Transmission Date: 20090109
  Serious: Yes (Hospitalization)
  Sender: FDA-Public Use
  Company Number: None

PATIENT
  Age: 61 Year
  Sex: Male
  Weight: 93.441 kg

DRUGS (1)
  1. ELOXATIN [Suspect]
     Indication: NEOPLASM MALIGNANT
     Dosage: 150MG PER CYCLE IV DRIP
     Route: 041
     Dates: start: 20080506, end: 20080917

REACTIONS (3)
  - CONFUSIONAL STATE [None]
  - PRURITUS GENERALISED [None]
  - TYPE IV HYPERSENSITIVITY REACTION [None]
